FAERS Safety Report 9344300 (Version 1)
Quarter: 2013Q2

REPORT INFORMATION
  Report Type: Spontaneous
  Country: CA (occurrence: CA)
  Receive Date: 20130612
  Receipt Date: 20130612
  Transmission Date: 20140414
  Serious: Yes (Other)
  Sender: FDA-Public Use
  Company Number: CA-TEVA-411757USA

PATIENT
  Age: 64 Year
  Sex: Male
  Weight: 68.1 kg

DRUGS (4)
  1. CLOPIDOGREL [Suspect]
     Route: 048
  2. CRESTOR [Concomitant]
  3. OMEGA-3 [Concomitant]
  4. TRICAR [Concomitant]

REACTIONS (3)
  - Hypokinesia [Recovered/Resolved]
  - Myalgia [Recovered/Resolved]
  - Product substitution issue [Recovered/Resolved]
